FAERS Safety Report 9423023 (Version 4)
Quarter: 2013Q4

REPORT INFORMATION
  Report Type: Spontaneous
  Country: US (occurrence: US)
  Receive Date: 20130726
  Receipt Date: 20131107
  Transmission Date: 20140711
  Serious: Yes (Hospitalization)
  Sender: FDA-Public Use
  Company Number: US-GLAXOSMITHKLINE-A1028262A

PATIENT
  Age: 44 Year
  Sex: Female
  Weight: 60 kg

DRUGS (7)
  1. FLOLAN [Suspect]
     Indication: PULMONARY HYPERTENSION
     Dosage: 25NGKM CONTINUOUS
     Route: 042
     Dates: start: 20070629
  2. COUMADIN [Concomitant]
  3. NORCO [Concomitant]
  4. REVATIO [Concomitant]
  5. TOLTERODINE [Concomitant]
  6. TRAMADOL [Concomitant]
  7. WARFARIN [Concomitant]

REACTIONS (14)
  - Asthenia [Unknown]
  - Catheter site infection [Recovered/Resolved]
  - Central venous catheterisation [Unknown]
  - Pseudomonas infection [Recovered/Resolved]
  - Bacteraemia [Recovered/Resolved]
  - Catheter site discharge [Recovered/Resolved]
  - Catheter site pain [Recovered/Resolved]
  - Catheter site erythema [Recovered/Resolved]
  - Central venous catheter removal [Unknown]
  - Application site discharge [Recovered/Resolved]
  - Heart rate increased [Recovered/Resolved]
  - Chills [Recovered/Resolved]
  - Pyrexia [Recovered/Resolved]
  - Tachycardia [Recovered/Resolved]
